FAERS Safety Report 23294647 (Version 1)
Quarter: 2023Q4

REPORT INFORMATION
  Report Type: Spontaneous
  Country: US (occurrence: US)
  Receive Date: 20231213
  Receipt Date: 20231213
  Transmission Date: 20240109
  Serious: No
  Sender: FDA-Public Use
  Company Number: US-LUNDBECK-DKLU3069851

PATIENT
  Age: 39 Year
  Sex: Female

DRUGS (2)
  1. VYEPTI [Suspect]
     Active Substance: EPTINEZUMAB-JJMR
     Indication: Migraine prophylaxis
     Route: 041
     Dates: start: 202211
  2. VYEPTI [Suspect]
     Active Substance: EPTINEZUMAB-JJMR
     Route: 041
     Dates: start: 20231027

REACTIONS (8)
  - Pruritus [Unknown]
  - Rash [Unknown]
  - Throat irritation [Unknown]
  - Nasal congestion [Unknown]
  - Chest discomfort [Unknown]
  - Agitation [Unknown]
  - Feeling abnormal [Unknown]
  - Abdominal discomfort [Unknown]
